FAERS Safety Report 7752377 (Version 3)
Quarter: 2013Q3

REPORT INFORMATION
  Report Type: Spontaneous
  Country: NL (occurrence: NL)
  Receive Date: 20110107
  Receipt Date: 20130809
  Transmission Date: 20140515
  Serious: Yes (Hospitalization)
  Sender: FDA-Public Use
  Company Number: NL-ACTELION-A-CH2010-43223

PATIENT
  Age: 4 Year
  Sex: Male

DRUGS (2)
  1. ZAVESCA [Suspect]
     Indication: NIEMANN-PICK DISEASE
     Dosage: UNK
     Route: 048
     Dates: start: 20090930
  2. ZAVESCA [Suspect]
     Dosage: UNK
     Route: 048
     Dates: start: 20101112

REACTIONS (4)
  - Pneumonia [Recovered/Resolved]
  - Disease progression [Unknown]
  - Gastrointestinal disorder [Unknown]
  - Drug ineffective [Unknown]
